FAERS Safety Report 15158626 (Version 1)
Quarter: 2018Q3

REPORT INFORMATION
  Report Type: Spontaneous
  Country: US (occurrence: US)
  Receive Date: 20180718
  Receipt Date: 20180718
  Transmission Date: 20181010
  Serious: Yes (Other)
  Sender: FDA-Public Use
  Company Number: US-BAYER-2018-133111

PATIENT
  Age: 70 Year
  Sex: Male
  Weight: 112.2 kg

DRUGS (1)
  1. MAGNEVIST [Suspect]
     Active Substance: GADOPENTETATE DIMEGLUMINE
     Indication: IMAGING PROCEDURE
     Dosage: 20 ML, ONCE
     Dates: start: 20180629, end: 20180629

REACTIONS (5)
  - Cyanosis [Recovered/Resolved]
  - Discomfort [Recovered/Resolved]
  - Unresponsive to stimuli [Recovered/Resolved]
  - Nausea [Recovered/Resolved]
  - Respiratory arrest [Recovered/Resolved]

NARRATIVE: CASE EVENT DATE: 20180629
